FAERS Safety Report 5336696-X (Version None)
Quarter: 2007Q2

REPORT INFORMATION
  Report Type: 
  Country: None (occurrence: None)
  Receive Date: 20070524
  Receipt Date: 20070524
  Transmission Date: 20071010
  Serious: Yes (Hospitalization)
  Sender: FDA-Public Use
  Company Number: None

PATIENT
  Age: 46 Year
  Sex: Male
  Weight: 74.3899 kg

DRUGS (9)
  1. OXALIPLATIN [Suspect]
     Indication: PANCREATIC CARCINOMA
     Dosage: OTO IV
     Route: 042
     Dates: start: 20061018
  2. AVASTIN [Suspect]
     Indication: PANCREATIC CARCINOMA
     Dosage: OTO IV
     Route: 042
     Dates: start: 20061018
  3. ASPIRIN [Concomitant]
  4. CAPTOPRIL [Concomitant]
  5. COREG [Concomitant]
  6. LASIX [Concomitant]
  7. GLIPZIDE [Concomitant]
  8. TUSSIONEX [Concomitant]
  9. ZOLOFT [Concomitant]

REACTIONS (6)
  - DRUG HYPERSENSITIVITY [None]
  - DYSAESTHESIA PHARYNX [None]
  - GLOSSODYNIA [None]
  - INFUSION RELATED REACTION [None]
  - SPEECH DISORDER [None]
  - TONGUE DISORDER [None]
